FAERS Safety Report 21596937 (Version 1)
Quarter: 2022Q4

REPORT INFORMATION
  Report Type: Spontaneous
  Country: US (occurrence: US)
  Receive Date: 20221115
  Receipt Date: 20221115
  Transmission Date: 20230112
  Serious: No
  Sender: FDA-Public Use
  Company Number: US-AMNEAL PHARMACEUTICALS-2022-AMRX-00148

PATIENT
  Sex: Female

DRUGS (6)
  1. ISOTRETINOIN [Suspect]
     Active Substance: ISOTRETINOIN
     Indication: Acne
     Dosage: UNK
     Route: 065
     Dates: start: 20211116, end: 20220110
  2. APRI [Concomitant]
     Active Substance: DESOGESTREL\ETHINYL ESTRADIOL
     Indication: Product used for unknown indication
     Dosage: 1 TABLETS, 1X/DAY
     Route: 048
  3. CEFADROXIL [Concomitant]
     Active Substance: CEFADROXIL
     Indication: Acne
     Dosage: 1 CAPSULES, 2X/DAY
     Route: 048
  4. CLINDAMYCIN [Concomitant]
     Active Substance: CLINDAMYCIN
     Indication: Acne
     Dosage: APPLY THIN LAYER ON AFFECTED AREA, 2X/DAY, AS NEEDED
     Route: 061
  5. TRETINOIN [Concomitant]
     Active Substance: TRETINOIN
     Indication: Acne
     Dosage: APPLY THIN LAYER ON AFFECTED AREA, BEDTIME
     Route: 061
  6. CETAPHIL CLEANSERS OILY SKIN [Concomitant]
     Indication: Acne
     Dosage: UNK
     Route: 065

REACTIONS (1)
  - Anxiety [Recovered/Resolved]
